FAERS Safety Report 14189425 (Version 1)
Quarter: 2017Q4

REPORT INFORMATION
  Report Type: Report from Study
  Country: CN (occurrence: CN)
  Receive Date: 20171115
  Receipt Date: 20171115
  Transmission Date: 20180321
  Serious: Yes (Other)
  Sender: FDA-Public Use
  Company Number: CN-ROCHE-2018716

PATIENT

DRUGS (2)
  1. CISPLATIN. [Suspect]
     Active Substance: CISPLATIN
     Indication: OESOPHAGEAL SQUAMOUS CELL CARCINOMA
     Dosage: A ONE HOUR INTRAVENOUS INFUSION ON DAY 1 PER WEEK
     Route: 042
  2. CAPECITABINE. [Suspect]
     Active Substance: CAPECITABINE
     Indication: OESOPHAGEAL SQUAMOUS CELL CARCINOMA
     Dosage: AT DAYS 1-14 EVERY THREE WEEKS
     Route: 048

REACTIONS (10)
  - Nausea [Unknown]
  - Palmar-plantar erythrodysaesthesia syndrome [Unknown]
  - Radiation pneumonitis [Unknown]
  - Thrombocytopenia [Unknown]
  - Leukopenia [Unknown]
  - Vomiting [Unknown]
  - Radiation oesophagitis [Unknown]
  - Febrile neutropenia [Unknown]
  - Anaemia [Unknown]
  - Diarrhoea [Unknown]
